FAERS Safety Report 25016537 (Version 4)
Quarter: 2025Q2

REPORT INFORMATION
  Report Type: Report from Study
  Country: ES (occurrence: ES)
  Receive Date: 20250227
  Receipt Date: 20250619
  Transmission Date: 20250716
  Serious: Yes (Other)
  Sender: ABBVIE
  Company Number: ES-ABBVIE-6150578

PATIENT
  Age: 44 Year
  Sex: Male

DRUGS (2)
  1. FOSCARBIDOPA\FOSLEVODOPA [Suspect]
     Active Substance: FOSCARBIDOPA\FOSLEVODOPA
     Indication: Parkinson^s disease
     Route: 058
     Dates: start: 20240911
  2. QUETIAPINE [Concomitant]
     Active Substance: QUETIAPINE
     Indication: Product used for unknown indication

REACTIONS (13)
  - Aggression [Recovered/Resolved]
  - Nightmare [Not Recovered/Not Resolved]
  - Emotional distress [Unknown]
  - Balance disorder [Unknown]
  - Insomnia [Not Recovered/Not Resolved]
  - On and off phenomenon [Unknown]
  - Pain in extremity [Recovered/Resolved]
  - Walking aid user [Unknown]
  - Loss of personal independence in daily activities [Unknown]
  - Constipation [Unknown]
  - Somnolence [Unknown]
  - Musculoskeletal stiffness [Unknown]
  - Depressed mood [Unknown]

NARRATIVE: CASE EVENT DATE: 20250208
